FAERS Safety Report 7018234-9 (Version None)
Quarter: 2010Q3

REPORT INFORMATION
  Report Type: 
  Country: None (occurrence: None)
  Receive Date: 20100927
  Receipt Date: 20100927
  Transmission Date: 20110219
  Serious: No
  Sender: FDA-Public Use
  Company Number: None

PATIENT
  Age: 50 Year
  Sex: Female
  Weight: 134.6 kg

DRUGS (1)
  1. ISOVUE-128 [Suspect]

REACTIONS (2)
  - PRURITUS [None]
  - URTICARIA [None]
